FAERS Safety Report 10213796 (Version 1)
Quarter: 2014Q2

REPORT INFORMATION
  Report Type: Spontaneous
  Country: IT (occurrence: IT)
  Receive Date: 20140603
  Receipt Date: 20140603
  Transmission Date: 20141212
  Serious: Yes (Hospitalization)
  Sender: FDA-Public Use
  Company Number: IT-MYLANLABS-2014S1012266

PATIENT
  Age: 85 Year
  Sex: Female

DRUGS (9)
  1. CITALOPRAM [Suspect]
     Indication: PRODUCT USED FOR UNKNOWN INDICATION
     Dosage: 10 GTT DAILY
     Route: 048
     Dates: start: 20110501, end: 20140422
  2. PALEXIA [Suspect]
     Indication: MUSCULOSKELETAL PAIN
     Dosage: 2 DF DAILY
     Route: 048
     Dates: start: 20140410, end: 20140422
  3. STILNOX [Suspect]
     Indication: PRODUCT USED FOR UNKNOWN INDICATION
     Dosage: 1 DF DAILY
     Route: 048
     Dates: start: 20110101, end: 20140422
  4. TACHIDOL [Suspect]
     Indication: MUSCULOSKELETAL PAIN
     Dosage: 2 DF DAILY
     Route: 048
     Dates: start: 20140410, end: 20140422
  5. LYRICA [Suspect]
     Indication: MUSCULOSKELETAL PAIN
     Dosage: 2 DF DAILY
     Route: 048
     Dates: start: 20140410, end: 20140422
  6. SINTROM [Concomitant]
     Indication: ATRIAL FIBRILLATION
     Route: 048
     Dates: start: 20110101, end: 20140422
  7. SEQUACOR [Concomitant]
     Indication: PRODUCT USED FOR UNKNOWN INDICATION
     Dosage: 1 DF
     Dates: start: 20110806, end: 20140422
  8. DELTACORTENE [Concomitant]
     Indication: POLYMYALGIA RHEUMATICA
     Route: 048
  9. RIVOTRIL [Concomitant]
     Indication: PRODUCT USED FOR UNKNOWN INDICATION
     Route: 048
     Dates: start: 20110101, end: 20140422

REACTIONS (5)
  - Bradykinesia [Recovered/Resolved]
  - Dyspnoea [Recovered/Resolved]
  - Nausea [Recovered/Resolved]
  - Vertigo CNS origin [Recovered/Resolved]
  - Bradyphrenia [Recovered/Resolved]
